FAERS Safety Report 14971711 (Version 1)
Quarter: 2018Q2

REPORT INFORMATION
  Report Type: Spontaneous
  Country: US (occurrence: US)
  Receive Date: 20180604
  Receipt Date: 20180604
  Transmission Date: 20180711
  Serious: Yes (Hospitalization)
  Sender: FDA-Public Use
  Company Number: US-SUN PHARMACEUTICAL INDUSTRIES LTD-2018US-174601

PATIENT
  Age: 77 Year
  Sex: Female

DRUGS (3)
  1. DIGOXIN. [Suspect]
     Active Substance: DIGOXIN
     Indication: PRODUCT USED FOR UNKNOWN INDICATION
     Dosage: LOWER DOSE
     Route: 065
  2. DIGOXIN. [Interacting]
     Active Substance: DIGOXIN
     Dosage: UNK
     Route: 065
  3. AMIODARONE [Interacting]
     Active Substance: AMIODARONE
     Indication: PRODUCT USED FOR UNKNOWN INDICATION
     Route: 065

REACTIONS (13)
  - Lethargy [Recovered/Resolved]
  - Atrioventricular dissociation [Recovered/Resolved]
  - Toxicity to various agents [Recovered/Resolved]
  - Sinus node dysfunction [Recovered/Resolved]
  - Cardioactive drug level increased [Recovered/Resolved]
  - Tachyarrhythmia [Recovered/Resolved]
  - Confusional state [Recovered/Resolved]
  - Dizziness [Recovered/Resolved]
  - Cerebrovascular accident [Recovered/Resolved]
  - Dehydration [Recovered/Resolved]
  - Drug interaction [Unknown]
  - Asthenia [Recovered/Resolved]
  - Bradycardia [Recovered/Resolved]
